FAERS Safety Report 12619067 (Version 3)
Quarter: 2017Q1

REPORT INFORMATION
  Report Type: Spontaneous
  Country: FR (occurrence: FR)
  Receive Date: 20160803
  Receipt Date: 20170113
  Transmission Date: 20170428
  Serious: Yes (Death, Life-Threatening, Hospitalization, Other)
  Sender: FDA-Public Use
  Company Number: FR-JNJFOC-20160726953

PATIENT
  Age: 69 Year
  Sex: Female
  Weight: 45 kg

DRUGS (10)
  1. PAROXETINE. [Concomitant]
     Active Substance: PAROXETINE
     Indication: PRODUCT USED FOR UNKNOWN INDICATION
     Route: 065
  2. EPOETINE ALFA [Concomitant]
     Indication: PRODUCT USED FOR UNKNOWN INDICATION
     Route: 065
  3. OMEPRAZOLE. [Concomitant]
     Active Substance: OMEPRAZOLE
     Indication: PRODUCT USED FOR UNKNOWN INDICATION
     Route: 065
  4. RISEDRONIC ACID [Concomitant]
     Active Substance: RISEDRONIC ACID
     Indication: PRODUCT USED FOR UNKNOWN INDICATION
     Route: 065
  5. NORETHANDROLONE. [Concomitant]
     Active Substance: NORETHANDROLONE
     Indication: PRODUCT USED FOR UNKNOWN INDICATION
     Route: 065
  6. PREDNISONE. [Concomitant]
     Active Substance: PREDNISONE
     Indication: PRODUCT USED FOR UNKNOWN INDICATION
     Route: 065
  7. FENTANYL. [Concomitant]
     Active Substance: FENTANYL
     Indication: PRODUCT USED FOR UNKNOWN INDICATION
     Route: 062
  8. LEVOTHYROXIN [Concomitant]
     Active Substance: LEVOTHYROXINE
     Indication: PRODUCT USED FOR UNKNOWN INDICATION
     Route: 065
  9. CLONAZEPAM. [Concomitant]
     Active Substance: CLONAZEPAM
     Indication: PRODUCT USED FOR UNKNOWN INDICATION
     Route: 065
  10. TRAMADOL HYDROCHLORIDE. [Suspect]
     Active Substance: TRAMADOL HYDROCHLORIDE
     Indication: PRODUCT USED FOR UNKNOWN INDICATION
     Dosage: 3-4 TIMES DAILY
     Route: 065

REACTIONS (20)
  - Hepatitis [Fatal]
  - Cell death [Unknown]
  - Renal impairment [Fatal]
  - Hypoxia [Unknown]
  - Cardiac arrest [Fatal]
  - Hypotension [Unknown]
  - Unresponsive to stimuli [Unknown]
  - Multiple organ dysfunction syndrome [Fatal]
  - Nervous system disorder [Unknown]
  - Metabolic acidosis [Fatal]
  - Hypercreatininaemia [Unknown]
  - Hyperammonaemia [Unknown]
  - Toxicity to various agents [Fatal]
  - Cholestasis [Unknown]
  - Supraventricular tachycardia [Fatal]
  - Asthenia [Unknown]
  - Thrombocytopenia [Unknown]
  - Hypoglycaemia [Fatal]
  - Somnolence [Unknown]
  - Myelodysplastic syndrome [Unknown]
